FAERS Safety Report 7815083-6 (Version None)
Quarter: 2011Q4

REPORT INFORMATION
  Report Type: 
  Country: None (occurrence: None)
  Receive Date: 20111014
  Receipt Date: 20111014
  Transmission Date: 20120403
  Serious: Yes (Other)
  Sender: FDA-Public Use
  Company Number: None

PATIENT
  Sex: Female
  Weight: 77.11 kg

DRUGS (3)
  1. VANCOMYCIN HCL [Suspect]
     Indication: ARTHRITIS BACTERIAL
     Dosage: 1GRAM
     Route: 042
     Dates: start: 20110906, end: 20111011
  2. VANCOMYCIN HCL [Suspect]
     Indication: DEVICE RELATED SEPSIS
     Dosage: 1GRAM
     Route: 042
     Dates: start: 20110906, end: 20111011
  3. VANCOMYCIN HCL [Concomitant]

REACTIONS (1)
  - RASH GENERALISED [None]
